FAERS Safety Report 8415562-7 (Version None)
Quarter: 2012Q2

REPORT INFORMATION
  Report Type: 
  Country: None (occurrence: None)
  Receive Date: 20120606
  Receipt Date: 20120529
  Transmission Date: 20120825
  Serious: Yes (Other)
  Sender: FDA-Public Use
  Company Number: US-ASTRAZENECA-2012SE35792

PATIENT
  Age: 66 Year
  Sex: Male

DRUGS (2)
  1. TOPROL-XL [Suspect]
     Dosage: GENERIC
     Route: 048
  2. TOPROL-XL [Suspect]
     Route: 048

REACTIONS (3)
  - HYPERTENSION [None]
  - RENAL CANCER [None]
  - RENAL DISORDER [None]
